FAERS Safety Report 16854223 (Version 1)
Quarter: 2019Q3

REPORT INFORMATION
  Report Type: Spontaneous
  Country: US (occurrence: US)
  Receive Date: 20190926
  Receipt Date: 20190926
  Transmission Date: 20191005
  Serious: No
  Sender: FDA-Public Use
  Company Number: US-BIOGEN-2019BI00789710

PATIENT
  Sex: Female
  Weight: 50.39 kg

DRUGS (3)
  1. PREDNISOLONE ACETATE. [Concomitant]
     Active Substance: PREDNISOLONE ACETATE
     Route: 065
  2. TECFIDERA [Suspect]
     Active Substance: DIMETHYL FUMARATE
     Indication: MULTIPLE SCLEROSIS
     Route: 048
  3. CYCLOPENTOLATE HCL [Concomitant]
     Active Substance: CYCLOPENTOLATE HYDROCHLORIDE
     Route: 065

REACTIONS (2)
  - Weight decreased [Unknown]
  - Influenza [Unknown]
